FAERS Safety Report 7377765-2 (Version None)
Quarter: 2011Q1

REPORT INFORMATION
  Report Type: 
  Country: None (occurrence: None)
  Receive Date: 20110328
  Receipt Date: 20110321
  Transmission Date: 20110831
  Serious: Yes (Hospitalization)
  Sender: FDA-Public Use
  Company Number: AU-PFIZER INC-2011048707

PATIENT
  Age: 64 Year
  Sex: Female
  Weight: 76.6 kg

DRUGS (8)
  1. IBUPROFEN [Concomitant]
     Dosage: 400 MG, UNK
     Route: 048
     Dates: start: 20101201
  2. SUNITINIB MALATE [Suspect]
     Indication: SARCOMA
     Dosage: 25 MG, 1X/DAY
     Route: 048
     Dates: start: 20110110, end: 20110307
  3. URAL [Concomitant]
     Dosage: UNK
     Route: 048
     Dates: start: 20110217
  4. THIAMINE [Concomitant]
     Dosage: 100 MG, UNK
     Route: 048
     Dates: start: 20110125
  5. ACETAMINOPHEN [Concomitant]
     Dosage: 1 G, UNK
     Route: 048
     Dates: start: 20101201
  6. COVERSYL [Concomitant]
     Dosage: 5 MG, UNK
     Route: 048
     Dates: start: 20060101
  7. COLOXYL WITH SENNA [Concomitant]
     Dosage: UNK
     Route: 048
     Dates: start: 20110118
  8. PANADEINE FORTE [Concomitant]
     Dosage: UNK
     Route: 048
     Dates: start: 20110217, end: 20110304

REACTIONS (3)
  - SKIN REACTION [None]
  - PAIN [None]
  - HYPONATRAEMIA [None]
